FAERS Safety Report 5024580-0 (Version None)
Quarter: 2006Q2

REPORT INFORMATION
  Report Type: 
  Country: None (occurrence: None)
  Receive Date: 20060607
  Receipt Date: 20060524
  Transmission Date: 20061013
  Serious: Yes (Hospitalization)
  Sender: FDA-Public Use
  Company Number: 2006054584

PATIENT
  Age: 74 Year
  Sex: Female

DRUGS (4)
  1. PREDNISOLONE [Suspect]
     Indication: TEMPORAL ARTERITIS
     Dosage: 40 MG (1 IN 1 D), ORAL
     Route: 048
     Dates: start: 20060115
  2. OMEPRAZOLE [Suspect]
     Indication: ILL-DEFINED DISORDER
     Dosage: 20 MG
     Dates: start: 20060207
  3. ASPIRIN [Concomitant]
  4. SALURES-K (BENDROFLUMETHIAZIDE, POTASSIUM CHLORIDE) [Concomitant]

REACTIONS (8)
  - DIZZINESS [None]
  - DYSPNOEA [None]
  - HYPERKALAEMIA [None]
  - MUSCULAR WEAKNESS [None]
  - NAUSEA [None]
  - PHARYNGOLARYNGEAL PAIN [None]
  - PRODUCTIVE COUGH [None]
  - RED BLOOD CELL SEDIMENTATION RATE INCREASED [None]
